FAERS Safety Report 8162733-3 (Version None)
Quarter: 2012Q1

REPORT INFORMATION
  Report Type: 
  Country: None (occurrence: None)
  Receive Date: 20120224
  Receipt Date: 20120217
  Transmission Date: 20120608
  Serious: Yes (Other)
  Sender: FDA-Public Use
  Company Number: US-SANOFI-AVENTIS-2012SA011705

PATIENT
  Age: 69 Year
  Sex: Male
  Weight: 77.1 kg

DRUGS (15)
  1. ASPIRIN [Suspect]
     Route: 048
  2. EXTRA STRENGTH TYLENOL [Concomitant]
  3. JANUVIA [Concomitant]
  4. IRON [Concomitant]
  5. MAGNESIUM [Concomitant]
  6. METOPROLOL TARTRATE [Concomitant]
  7. PRILOSEC [Concomitant]
  8. POTASSIUM CHLORIDE [Concomitant]
  9. LIPITOR [Concomitant]
  10. PLAVIX [Suspect]
     Route: 048
     Dates: start: 20110101
  11. TIKOSYN [Suspect]
     Indication: ATRIAL FIBRILLATION
     Route: 048
     Dates: start: 20110101
  12. LISINOPRIL [Concomitant]
  13. MULTI-VITAMINS [Concomitant]
  14. COUMADIN [Suspect]
     Dates: start: 20110101
  15. ASCORBIC ACID [Concomitant]

REACTIONS (2)
  - CORONARY ARTERY OCCLUSION [None]
  - MOUTH HAEMORRHAGE [None]
